FAERS Safety Report 17397054 (Version 2)
Quarter: 2020Q2

REPORT INFORMATION
  Report Type: Spontaneous
  Country: AU (occurrence: AU)
  Receive Date: 20200210
  Receipt Date: 20200423
  Transmission Date: 20200713
  Serious: Yes (Life-Threatening, Hospitalization, Other)
  Sender: FDA-Public Use
  Company Number: AU-PFIZER INC-2020048768

PATIENT
  Age: 66 Year
  Sex: Male

DRUGS (9)
  1. VALSARTAN/AMLODIPINO [Suspect]
     Active Substance: AMLODIPINE\VALSARTAN
  2. TRAMADOL HCL [Suspect]
     Active Substance: TRAMADOL HYDROCHLORIDE
  3. XELJANZ [Suspect]
     Active Substance: TOFACITINIB CITRATE
     Indication: RHEUMATOID ARTHRITIS
     Dosage: 5 MG, TWICE DAILY
     Route: 048
     Dates: start: 20151203
  4. PARACETAMOL [Suspect]
     Active Substance: ACETAMINOPHEN
     Dosage: UNK G
  5. ESCITALOPRAM [Suspect]
     Active Substance: ESCITALOPRAM OXALATE
     Dosage: UNK MG
  6. MOCLOBEMIDE [Suspect]
     Active Substance: MOCLOBEMIDE
  7. VENLAFAXINE HCL [Suspect]
     Active Substance: VENLAFAXINE HYDROCHLORIDE
  8. FLUOXETINE [Suspect]
     Active Substance: FLUOXETINE HYDROCHLORIDE
  9. ESOMEPRAZOLE MAGNESIUM. [Suspect]
     Active Substance: ESOMEPRAZOLE MAGNESIUM

REACTIONS (9)
  - Pleural effusion [Unknown]
  - Intentional overdose [Recovered/Resolved]
  - Suicide attempt [Recovered/Resolved]
  - Serotonin syndrome [Unknown]
  - Atelectasis [Unknown]
  - Metabolic acidosis [Unknown]
  - Cognitive disorder [Unknown]
  - Acute kidney injury [Unknown]
  - Physical deconditioning [Unknown]

NARRATIVE: CASE EVENT DATE: 201911
